FAERS Safety Report 6745041-4 (Version None)
Quarter: 2010Q2

REPORT INFORMATION
  Report Type: 
  Country: None (occurrence: None)
  Receive Date: 20100527
  Receipt Date: 20100517
  Transmission Date: 20101027
  Serious: Yes (Hospitalization)
  Sender: FDA-Public Use
  Company Number: IL-WATSON-2010-06680

PATIENT
  Sex: Female

DRUGS (1)
  1. FENTANYL CITRATE [Suspect]
     Indication: DRUG EXPOSURE DURING PREGNANCY
     Dosage: 20 MCG PER KG PER HOUR
     Route: 064

REACTIONS (4)
  - APNOEA [None]
  - HYPOTONIA [None]
  - MUSCLE RIGIDITY [None]
  - NEONATAL RESPIRATORY DISTRESS SYNDROME [None]
